FAERS Safety Report 12979598 (Version 1)
Quarter: 2016Q4

REPORT INFORMATION
  Report Type: Spontaneous
  Country: US (occurrence: US)
  Receive Date: 20161128
  Receipt Date: 20161128
  Transmission Date: 20170207
  Serious: No
  Sender: FDA-Public Use
  Company Number: US-ASTRAZENECA-2016SF18417

PATIENT
  Sex: Female

DRUGS (4)
  1. BRILINTA [Suspect]
     Active Substance: TICAGRELOR
     Indication: ACUTE CORONARY SYNDROME
     Dosage: 90 MG, UNKNOWN
     Route: 048
  2. MYALEPT [Concomitant]
     Active Substance: METRELEPTIN
  3. BYDUREON [Concomitant]
     Active Substance: EXENATIDE
  4. BYETTA [Concomitant]
     Active Substance: EXENATIDE

REACTIONS (1)
  - Malaise [Unknown]
